FAERS Safety Report 7936624-4 (Version None)
Quarter: 2011Q4

REPORT INFORMATION
  Report Type: 
  Country: None (occurrence: None)
  Receive Date: 20111123
  Receipt Date: 20111114
  Transmission Date: 20120403
  Serious: Yes (Hospitalization)
  Sender: FDA-Public Use
  Company Number: ES-MPIJNJ-2011-05751

PATIENT

DRUGS (6)
  1. OMEPRAZOLE [Concomitant]
  2. MELPHALAN HYDROCHLORIDE [Concomitant]
     Indication: MULTIPLE MYELOMA
     Dosage: UNK
     Dates: start: 20110805
  3. VELCADE [Suspect]
     Indication: MULTIPLE MYELOMA
     Dosage: 1.3 MG/M2, UNK
     Route: 042
     Dates: start: 20110805, end: 20110816
  4. PREDNISONE TAB [Concomitant]
     Indication: MULTIPLE MYELOMA
     Dosage: UNK
     Dates: start: 20110805
  5. ALLOPURINOL [Concomitant]
  6. BACTRIM [Concomitant]

REACTIONS (2)
  - INTESTINAL ISCHAEMIA [None]
  - INTESTINAL PERFORATION [None]
